FAERS Safety Report 7965837-0 (Version None)
Quarter: 2011Q4

REPORT INFORMATION
  Report Type: 
  Country: None (occurrence: None)
  Receive Date: 20111208
  Receipt Date: 20111202
  Transmission Date: 20120403
  Serious: Yes (Hospitalization, Other)
  Sender: FDA-Public Use
  Company Number: US-ROXANE LABORATORIES, INC.-2011-RO-01735RO

PATIENT
  Age: 15 Month
  Sex: Male

DRUGS (1)
  1. ONDANSETRON [Suspect]
     Route: 048

REACTIONS (4)
  - TOXICITY TO VARIOUS AGENTS [None]
  - TACHYCARDIA [None]
  - MENTAL STATUS CHANGES [None]
  - ELECTROCARDIOGRAM QT PROLONGED [None]
